FAERS Safety Report 22591946 (Version 1)
Quarter: 2023Q2

REPORT INFORMATION
  Report Type: Spontaneous
  Country: US (occurrence: None)
  Receive Date: 20230612
  Receipt Date: 20230612
  Transmission Date: 20230721
  Serious: No
  Sender: FDA-Public Use
  Company Number: US-ROCHE-3336235

PATIENT
  Age: 59 Year
  Sex: Female
  Weight: 68.1 kg

DRUGS (3)
  1. TECENTRIQ [Suspect]
     Active Substance: ATEZOLIZUMAB
     Indication: Breast cancer
     Route: 041
     Dates: start: 2020
  2. ZOMETA [Concomitant]
     Active Substance: ZOLEDRONIC ACID
  3. TAXOL [Concomitant]
     Active Substance: PACLITAXEL
     Indication: Breast cancer

REACTIONS (6)
  - Swelling [Unknown]
  - Pain [Unknown]
  - Neuropathy peripheral [Unknown]
  - Insomnia [Unknown]
  - Product administered at inappropriate site [Unknown]
  - Off label use [Unknown]

NARRATIVE: CASE EVENT DATE: 20200101
